FAERS Safety Report 4795660-X (Version None)
Quarter: 2005Q4

REPORT INFORMATION
  Report Type: 
  Country: None (occurrence: None)
  Receive Date: 20051003
  Receipt Date: 20050818
  Transmission Date: 20060501
  Serious: Yes (Other)
  Sender: FDA-Public Use
  Company Number: SEWYE013228SEP05

PATIENT
  Sex: Male

DRUGS (2)
  1. ENBREL [Suspect]
     Indication: ANKYLOSING SPONDYLITIS
     Dosage: THE DOSE REGIMEN WAS NOT SPECIFIED
     Dates: end: 20050101
  2. VALPROATE SODIUM [Suspect]
     Indication: EPILEPSY

REACTIONS (3)
  - ANTICONVULSANT DRUG LEVEL INCREASED [None]
  - DRUG INTERACTION [None]
  - EPILEPSY [None]
